FAERS Safety Report 4532669-5 (Version None)
Quarter: 2004Q4

REPORT INFORMATION
  Report Type: 
  Country: None (occurrence: None)
  Receive Date: 20041221
  Receipt Date: 20041209
  Transmission Date: 20050328
  Serious: Yes (Hospitalization)
  Sender: FDA-Public Use
  Company Number: DE-NOVOPROD-241008

PATIENT
  Age: 81 Year
  Sex: Female

DRUGS (5)
  1. LEVEMIR PENFILL [Suspect]
     Indication: INSULIN-REQUIRING TYPE II DIABETES MELLITUS
     Dosage: 28 IU, QD
     Route: 058
  2. NOVORAPID [Concomitant]
     Indication: INSULIN-REQUIRING TYPE II DIABETES MELLITUS
     Dosage: 40 IU, QD
     Route: 058
  3. THYBON [Concomitant]
     Dosage: 2 UNK, QD
     Route: 048
  4. NOVODIGAL [Concomitant]
     Dosage: 1 UNK, QD
     Route: 048
  5. FUROSEMID ^DAK^ [Concomitant]
     Dosage: 1 UNK, QD
     Route: 048

REACTIONS (1)
  - APATHY [None]
